FAERS Safety Report 10265876 (Version 1)
Quarter: 2014Q2

REPORT INFORMATION
  Report Type: Spontaneous
  Country: DE (occurrence: DE)
  Receive Date: 20140627
  Receipt Date: 20140627
  Transmission Date: 20141212
  Serious: Yes (Congenital Anomaly)
  Sender: FDA-Public Use
  Company Number: DE-TEVA-489274GER

PATIENT
  Sex: Female
  Weight: 3.32 kg

DRUGS (3)
  1. DOXYCYCLIN [Suspect]
     Route: 064
  2. FOLIO [Concomitant]
     Route: 064
  3. ERYTHROMYCIN [Concomitant]
     Route: 064

REACTIONS (1)
  - Craniosynostosis [Not Recovered/Not Resolved]
